FAERS Safety Report 12989090 (Version 16)
Quarter: 2018Q4

REPORT INFORMATION
  Report Type: Spontaneous
  Country: US (occurrence: US)
  Receive Date: 20161201
  Receipt Date: 20181217
  Transmission Date: 20190204
  Serious: Yes (Hospitalization)
  Sender: FDA-Public Use
  Company Number: US-ACTELION-A-NJ2016-146226

PATIENT
  Age: 51 Year
  Sex: Female

DRUGS (12)
  1. OPSUMIT [Suspect]
     Active Substance: MACITENTAN
     Dosage: 10 MG, QD
     Route: 048
  2. OPSUMIT [Suspect]
     Active Substance: MACITENTAN
     Indication: PULMONARY ARTERIAL HYPERTENSION
     Dosage: 10 MG, QD
     Route: 048
     Dates: start: 20160915
  3. VELETRI [Suspect]
     Active Substance: EPOPROSTENOL
     Indication: PULMONARY ARTERIAL HYPERTENSION
     Dosage: 77.3 NG/KG, PER MIN
     Route: 042
     Dates: start: 20180901, end: 20181015
  4. BONIVA [Concomitant]
     Active Substance: IBANDRONATE SODIUM
  5. ADEMPAS [Concomitant]
     Active Substance: RIOCIGUAT
  6. ZYRTEC [Concomitant]
     Active Substance: CETIRIZINE HYDROCHLORIDE
  7. ZANTAC [Concomitant]
     Active Substance: RANITIDINE HYDROCHLORIDE
  8. PHENOBARBITAL. [Concomitant]
     Active Substance: PHENOBARBITAL
  9. DIGOXIN. [Concomitant]
     Active Substance: DIGOXIN
  10. REMODULIN [Concomitant]
     Active Substance: TREPROSTINIL
     Dosage: 84 NG/KG, PER MIN
     Dates: start: 20140828
  11. LIPITOR [Concomitant]
     Active Substance: ATORVASTATIN CALCIUM
  12. TORSEMIDE. [Concomitant]
     Active Substance: TORSEMIDE

REACTIONS (19)
  - Palpitations [Recovered/Resolved]
  - Rhinovirus infection [Unknown]
  - Pyrexia [Unknown]
  - Nasopharyngitis [Unknown]
  - Catheter site haemorrhage [Recovered/Resolved]
  - Oxygen therapy [Unknown]
  - Pneumonia [Recovering/Resolving]
  - Dyspnoea [Unknown]
  - Dizziness [Not Recovered/Not Resolved]
  - Hospitalisation [Unknown]
  - Malaise [Unknown]
  - Gastritis [Unknown]
  - Rash [Not Recovered/Not Resolved]
  - Therapy change [Unknown]
  - Unevaluable event [Unknown]
  - Oedema peripheral [Unknown]
  - Diarrhoea [Unknown]
  - Swelling [Not Recovered/Not Resolved]
  - Intestinal polyp [Unknown]

NARRATIVE: CASE EVENT DATE: 20161102
